FAERS Safety Report 11037792 (Version 1)
Quarter: 2015Q2

REPORT INFORMATION
  Report Type: Spontaneous
  Country: US (occurrence: None)
  Receive Date: 20150415
  Receipt Date: 20150415
  Transmission Date: 20150821
  Serious: No
  Sender: FDA-Public Use
  Company Number: None

PATIENT
  Age: 40 Year
  Sex: Female
  Weight: 68.49 kg

DRUGS (6)
  1. CHANTIX [Suspect]
     Active Substance: VARENICLINE TARTRATE
     Indication: SMOKING CESSATION THERAPY
     Dosage: 1 PILL
     Route: 048
     Dates: start: 20140402, end: 20150414
  2. CLONAZEPAM. [Concomitant]
     Active Substance: CLONAZEPAM
  3. PHENTERMINE [Concomitant]
     Active Substance: PHENTERMINE
  4. TROKENDI [Concomitant]
  5. ESCITALOPRAM [Concomitant]
     Active Substance: ESCITALOPRAM OXALATE
  6. METOPROLOL [Concomitant]
     Active Substance: METOPROLOL

REACTIONS (6)
  - Personality change [None]
  - Dyspepsia [None]
  - Somnolence [None]
  - Crying [None]
  - Depression [None]
  - Feeling abnormal [None]

NARRATIVE: CASE EVENT DATE: 20150414
